FAERS Safety Report 8353727-3 (Version None)
Quarter: 2012Q2

REPORT INFORMATION
  Report Type: 
  Country: None (occurrence: None)
  Receive Date: 20120511
  Receipt Date: 20110927
  Transmission Date: 20120825
  Serious: No
  Sender: FDA-Public Use
  Company Number: US-GLAXOSMITHKLINE-A0946511A

PATIENT
  Age: 42 Year
  Sex: Female
  Weight: 69.1 kg

DRUGS (2)
  1. TYKERB [Suspect]
     Indication: BREAST CANCER
     Dosage: 1250MG PER DAY
     Route: 048
     Dates: start: 20110921, end: 20111101
  2. FEMARA [Concomitant]
     Indication: BREAST CANCER METASTATIC
     Dates: start: 20110827

REACTIONS (20)
  - DRY SKIN [None]
  - CARBOHYDRATE ANTIGEN 15-3 INCREASED [None]
  - PRURITUS [None]
  - HYPERTENSION [None]
  - MIDDLE INSOMNIA [None]
  - ACNE [None]
  - DIARRHOEA [None]
  - MADAROSIS [None]
  - NERVOUSNESS [None]
  - FATIGUE [None]
  - ENERGY INCREASED [None]
  - BLOOD ALKALINE PHOSPHATASE INCREASED [None]
  - RASH PRURITIC [None]
  - FLUSHING [None]
  - HYPERHIDROSIS [None]
  - RASH ERYTHEMATOUS [None]
  - ERUCTATION [None]
  - BURNING SENSATION [None]
  - ABDOMINAL PAIN UPPER [None]
  - EPISTAXIS [None]
